FAERS Safety Report 9150328 (Version 1)
Quarter: 2013Q1

REPORT INFORMATION
  Report Type: Spontaneous
  Country: US (occurrence: US)
  Receive Date: 20130308
  Receipt Date: 20130308
  Transmission Date: 20140127
  Serious: No
  Sender: FDA-Public Use
  Company Number: US-GLAXOSMITHKLINE-A0976579A

PATIENT
  Age: 65 Year
  Sex: Male

DRUGS (1)
  1. NICORETTE [Suspect]
     Indication: EX-TOBACCO USER
     Dates: start: 20120325, end: 20120501

REACTIONS (8)
  - Gingivitis [Not Recovered/Not Resolved]
  - Gingival erythema [Not Recovered/Not Resolved]
  - Lip swelling [Not Recovered/Not Resolved]
  - Lip infection [Not Recovered/Not Resolved]
  - Gingival infection [Not Recovered/Not Resolved]
  - Oedema mouth [Not Recovered/Not Resolved]
  - Hypersensitivity [Not Recovered/Not Resolved]
  - Drug administration error [Unknown]
